FAERS Safety Report 6083411-0 (Version None)
Quarter: 2009Q1

REPORT INFORMATION
  Report Type: 
  Country: None (occurrence: None)
  Receive Date: 20090219
  Receipt Date: 20090212
  Transmission Date: 20090719
  Serious: Yes (Hospitalization)
  Sender: FDA-Public Use
  Company Number: CH-ASTRAZENECA-2009PK00580

PATIENT
  Age: 35 Year
  Sex: Male

DRUGS (9)
  1. SEROQUEL [Suspect]
     Route: 048
     Dates: start: 20081125, end: 20081130
  2. SEROQUEL [Suspect]
     Route: 048
     Dates: start: 20081201, end: 20081202
  3. SEROQUEL [Suspect]
     Route: 048
     Dates: start: 20081203, end: 20081205
  4. SEROQUEL [Suspect]
     Route: 048
     Dates: start: 20081206, end: 20081210
  5. SEROQUEL [Suspect]
     Route: 048
     Dates: start: 20081211, end: 20081215
  6. DEPAKENE [Suspect]
     Route: 048
     Dates: start: 20081202, end: 20081215
  7. METHADON [Concomitant]
     Route: 048
     Dates: start: 20000101, end: 20090109
  8. MAGNESIUM SULFATE [Concomitant]
     Route: 048
     Dates: start: 20081121, end: 20090109
  9. CHLORALDURAT [Concomitant]
     Route: 048
     Dates: start: 20081121, end: 20090109

REACTIONS (1)
  - LEUKOPENIA [None]
